FAERS Safety Report 9554554 (Version 2)
Quarter: 2013Q4

REPORT INFORMATION
  Report Type: Spontaneous
  Country: US (occurrence: US)
  Receive Date: 20130925
  Receipt Date: 20131011
  Transmission Date: 20140711
  Serious: No
  Sender: FDA-Public Use
  Company Number: US-009507513-1309USA012125

PATIENT
  Age: 6 Year
  Sex: Female

DRUGS (6)
  1. CLARITIN CHEWABLE TABLETS [Suspect]
     Indication: HYPERSENSITIVITY
     Dosage: 5 MG, BID
     Route: 048
     Dates: start: 20130903, end: 20130908
  2. CLARITIN CHEWABLE TABLETS [Suspect]
     Indication: LACRIMATION INCREASED
  3. CLARITIN CHEWABLE TABLETS [Suspect]
     Indication: RHINORRHOEA
  4. CLARITIN CHEWABLE TABLETS [Suspect]
     Indication: THROAT IRRITATION
  5. CLARITIN CHEWABLE TABLETS [Suspect]
     Indication: SNEEZING
  6. FLINTSTONES MULTIVITAMIN [Concomitant]
     Indication: PRODUCT USED FOR UNKNOWN INDICATION
     Dosage: UNK UNK, UNKNOWN

REACTIONS (1)
  - Drug ineffective [Unknown]
